FAERS Safety Report 5067791-0 (Version None)
Quarter: 2006Q3

REPORT INFORMATION
  Report Type: 
  Country: None (occurrence: None)
  Receive Date: 20060802
  Receipt Date: 20060615
  Transmission Date: 20061208
  Serious: Yes (Death)
  Sender: FDA-Public Use
  Company Number: JP-JPN-A200602067

PATIENT
  Age: 73 Year
  Sex: Male

DRUGS (9)
  1. PAXIL [Suspect]
     Indication: DEPRESSION
     Dosage: 20MG TWICE PER DAY
     Route: 048
     Dates: start: 20051229, end: 20060401
  2. BLOPRESS [Concomitant]
     Indication: HYPERTENSION
     Route: 048
     Dates: start: 20060105
  3. CONIEL [Concomitant]
     Indication: HYPERTENSION
     Dosage: 4MG PER DAY
     Route: 048
     Dates: start: 20060105
  4. LEXOTAN [Concomitant]
     Indication: DEPRESSION
     Dosage: 4MG PER DAY
     Route: 048
     Dates: start: 20060105
  5. MEDIPEACE [Concomitant]
     Indication: DEPRESSION
     Dosage: 1MG PER DAY
     Route: 048
     Dates: start: 20060105
  6. SOLANAX [Concomitant]
     Indication: DEPRESSION
     Dosage: .8MG PER DAY
     Route: 048
     Dates: start: 20060105
  7. BENZALIN [Concomitant]
     Route: 048
  8. AMOBANTES [Concomitant]
     Route: 048
  9. HALCION [Concomitant]
     Route: 048

REACTIONS (1)
  - COMPLETED SUICIDE [None]
